FAERS Safety Report 11773752 (Version 1)
Quarter: 2015Q4

REPORT INFORMATION
  Report Type: Spontaneous
  Country: US (occurrence: US)
  Receive Date: 20151124
  Receipt Date: 20151124
  Transmission Date: 20160304
  Serious: No
  Sender: FDA-Public Use
  Company Number: US-BAYER-2015-472654

PATIENT
  Age: 95 Year
  Sex: Male

DRUGS (1)
  1. MIRALAX [Suspect]
     Active Substance: POLYETHYLENE GLYCOL 3350
     Dosage: UNK, QD

REACTIONS (7)
  - Diarrhoea [None]
  - Decreased appetite [None]
  - Rhinorrhoea [None]
  - Foreign body [None]
  - Dehydration [None]
  - Faeces soft [None]
  - Eye pruritus [None]
